FAERS Safety Report 5962017-5 (Version None)
Quarter: 2008Q4

REPORT INFORMATION
  Report Type: 
  Country: None (occurrence: None)
  Receive Date: 20081121
  Receipt Date: 20081111
  Transmission Date: 20090506
  Serious: Yes (Other)
  Sender: FDA-Public Use
  Company Number: PHEH2008US10028

PATIENT
  Sex: Female
  Weight: 59.864 kg

DRUGS (5)
  1. GLEEVEC [Suspect]
     Indication: CHRONIC EOSINOPHILIC LEUKAEMIA
     Dosage: 400 MG, QD
     Route: 048
     Dates: start: 20070709
  2. GLEEVEC [Suspect]
     Dosage: 200 MG, QD
     Route: 048
     Dates: end: 20080804
  3. SYNTHROID [Concomitant]
     Indication: HYPOTHYROIDISM
     Dosage: DAILY
  4. ASPIRIN [Concomitant]
     Dosage: 81 MG, QD
  5. VITAMIN D [Concomitant]

REACTIONS (11)
  - ANTIMITOCHONDRIAL ANTIBODY POSITIVE [None]
  - AUTOIMMUNE HEPATITIS [None]
  - BIOPSY LIVER [None]
  - CHOLELITHIASIS [None]
  - FIBROSIS [None]
  - HEPATIC ENZYME INCREASED [None]
  - HEPATITIS [None]
  - INFLAMMATION [None]
  - NASAL POLYPS [None]
  - NEUTROPENIA [None]
  - NEUTROPHIL COUNT DECREASED [None]
